FAERS Safety Report 9509617 (Version 1)
Quarter: 2013Q1

REPORT INFORMATION
  Report Type: Spontaneous
  Country: US (occurrence: None)
  Receive Date: 20130305
  Receipt Date: 20130305
  Transmission Date: 20140127
  Serious: Yes (Hospitalization)
  Sender: FDA-Public Use
  Company Number: 163-21880-12071596

PATIENT
  Age: 84 Year
  Sex: Female
  Weight: 77.11 kg

DRUGS (16)
  1. REVLIMID (LENALIDOMIDE) (CAPSULES) [Suspect]
     Indication: ESSENTIAL THROMBOCYTHAEMIA
     Dosage: 21 IN 28 D
     Dates: start: 20120302
  2. TRIGLYCERIDE (TRIGLYCERIDES) [Concomitant]
  3. ISOSORBIDE (ISOSORBIDE) [Concomitant]
  4. PLAVIX (CLOPIDOGREL SULFATE) [Concomitant]
  5. PROCRIT [Concomitant]
  6. PRAVASTATIN [Concomitant]
  7. AMLODIPINE [Concomitant]
  8. METOPROLOL [Concomitant]
  9. PRILOSEC [Concomitant]
  10. VENTOLIN HFA (SALBUTAMOL SULFATE) [Concomitant]
  11. LEVOTHYROXINE [Concomitant]
  12. ENABLEX (DARIFENACIN HYDROBROMIDE) [Concomitant]
  13. SERTRALINE [Concomitant]
  14. B-12 (CYANOCOBALAMIN) [Concomitant]
  15. FOLIC ACID [Concomitant]
  16. VITAMIN D (ERGOCALCIFEROL) [Concomitant]

REACTIONS (3)
  - Dehydration [None]
  - Dyspnoea [None]
  - Fatigue [None]
